FAERS Safety Report 8317442-4 (Version None)
Quarter: 2012Q2

REPORT INFORMATION
  Report Type: 
  Country: None (occurrence: None)
  Receive Date: 20120427
  Receipt Date: 20120419
  Transmission Date: 20120825
  Serious: Yes (Death, Life-Threatening, Hospitalization)
  Sender: FDA-Public Use
  Company Number: DE-JNJFOC-20110807540

PATIENT
  Sex: Female

DRUGS (12)
  1. RITUXIMAB [Concomitant]
     Dates: start: 20110501
  2. CERTOLIZUMAB [Suspect]
     Indication: RHEUMATOID ARTHRITIS
     Dates: start: 20100901, end: 20101001
  3. ABATACEPT [Suspect]
     Indication: RHEUMATOID ARTHRITIS
     Dates: start: 20090201, end: 20090301
  4. METHOTREXATE [Suspect]
     Indication: RHEUMATOID ARTHRITIS
     Route: 051
     Dates: start: 20090601, end: 20101001
  5. RITUXIMAB [Concomitant]
     Indication: ARTHRITIS
     Dates: start: 20110101
  6. TOCILIZUMAB [Suspect]
     Indication: RHEUMATOID ARTHRITIS
     Dates: start: 20090301, end: 20090501
  7. REMICADE [Suspect]
     Indication: RHEUMATOID ARTHRITIS
     Dosage: 5 INFUSIONS
     Route: 042
     Dates: start: 20091101, end: 20100601
  8. ARCOXIA [Concomitant]
  9. PREDNISOLONE [Concomitant]
     Dates: start: 20100901
  10. METHOTREXATE [Concomitant]
  11. ADALIMUMAB [Suspect]
     Indication: RHEUMATOID ARTHRITIS
     Dates: start: 20090501, end: 20091101
  12. FOLSAN [Concomitant]

REACTIONS (6)
  - CARDIAC FAILURE [None]
  - SYSTEMIC LUPUS ERYTHEMATOSUS [None]
  - PNEUMONIA [None]
  - URINARY TRACT INFECTION [None]
  - POSTOPERATIVE THROMBOSIS [None]
  - LUNG ADENOCARCINOMA METASTATIC [None]
